FAERS Safety Report 12293614 (Version 1)
Quarter: 2016Q2

REPORT INFORMATION
  Report Type: Report from Study
  Country: US (occurrence: US)
  Receive Date: 20160421
  Receipt Date: 20160421
  Transmission Date: 20160815
  Serious: Yes (Other)
  Sender: FDA-Public Use
  Company Number: US-ABBVIE-16K-163-1606544-00

PATIENT
  Sex: Female

DRUGS (1)
  1. HUMIRA [Suspect]
     Active Substance: ADALIMUMAB
     Indication: PSORIATIC ARTHROPATHY
     Route: 058
     Dates: start: 2014, end: 2015

REACTIONS (8)
  - Urinary incontinence [Recovered/Resolved]
  - Cystitis [Recovered/Resolved]
  - Post procedural infection [Unknown]
  - Surgery [Unknown]
  - Kidney infection [Recovered/Resolved]
  - Rash [Recovered/Resolved]
  - Psoriatic arthropathy [Not Recovered/Not Resolved]
  - Urinary tract infection [Recovered/Resolved]

NARRATIVE: CASE EVENT DATE: 2014
